FAERS Safety Report 24395502 (Version 1)
Quarter: 2024Q4

REPORT INFORMATION
  Report Type: Spontaneous
  Country: TR (occurrence: TR)
  Receive Date: 20241004
  Receipt Date: 20241004
  Transmission Date: 20250115
  Serious: Yes (Hospitalization)
  Sender: STRIDES
  Company Number: TR-STRIDES ARCOLAB LIMITED-2024SP012702

PATIENT
  Age: 16 Year
  Sex: Male

DRUGS (10)
  1. OLANZAPINE [Suspect]
     Active Substance: OLANZAPINE
     Indication: Schizophrenia
     Dosage: 17.5 MILLIGRAM, QD
     Route: 065
  2. QUETIAPINE [Suspect]
     Active Substance: QUETIAPINE
     Indication: Schizophrenia
     Dosage: UNK
     Route: 065
  3. QUETIAPINE [Suspect]
     Active Substance: QUETIAPINE
     Dosage: 900 MILLIGRAM, QD
     Route: 065
  4. BIPERIDEN [Suspect]
     Active Substance: BIPERIDEN
     Indication: Schizophrenia
     Dosage: UNK
     Route: 065
  5. BIPERIDEN [Suspect]
     Active Substance: BIPERIDEN
     Dosage: 5 MILLIGRAM, QD
     Route: 065
  6. BIPERIDEN [Suspect]
     Active Substance: BIPERIDEN
     Dosage: 6 MILLIGRAM, QD
     Route: 065
  7. RISPERIDONE [Suspect]
     Active Substance: RISPERIDONE
     Indication: Schizophrenia
     Dosage: UNK
     Route: 065
  8. RISPERIDONE [Suspect]
     Active Substance: RISPERIDONE
     Indication: Delusion
     Dosage: 2.5 MILLIGRAM, QD (TAPPERED)
     Route: 065
  9. RISPERIDONE [Suspect]
     Active Substance: RISPERIDONE
     Dosage: 5.5 MILLIGRAM, QD
     Route: 065
  10. RISPERIDONE [Suspect]
     Active Substance: RISPERIDONE
     Dosage: 4 MILLIGRAM, QD
     Route: 065

REACTIONS (6)
  - Muscle contractions involuntary [Recovered/Resolved]
  - Muscle rigidity [Recovered/Resolved]
  - Extrapyramidal disorder [Recovered/Resolved]
  - Cogwheel rigidity [Recovered/Resolved]
  - Parkinsonism [Recovered/Resolved]
  - Therapy non-responder [Unknown]
